FAERS Safety Report 23337717 (Version 1)
Quarter: 2023Q4

REPORT INFORMATION
  Report Type: Spontaneous
  Country: CA (occurrence: CA)
  Receive Date: 20231226
  Receipt Date: 20231226
  Transmission Date: 20240109
  Serious: Yes (Disabling)
  Sender: FDA-Public Use
  Company Number: None

PATIENT
  Age: 38 Year
  Sex: Male
  Weight: 113 kg

DRUGS (2)
  1. TRINTELLIX [Suspect]
     Active Substance: VORTIOXETINE HYDROBROMIDE
     Indication: Anxiety
     Dosage: 20 MILLIGRAM, QD
     Route: 048
  2. ATIVAN [Concomitant]
     Active Substance: LORAZEPAM
     Indication: Product used for unknown indication
     Dosage: UNK
     Route: 065

REACTIONS (6)
  - Balance disorder [Recovering/Resolving]
  - Halo vision [Recovering/Resolving]
  - Photopsia [Recovering/Resolving]
  - Visual field defect [Recovering/Resolving]
  - Dizziness [Recovering/Resolving]
  - Product use in unapproved indication [Unknown]
